FAERS Safety Report 8621819-7 (Version None)
Quarter: 2012Q3

REPORT INFORMATION
  Report Type: 
  Country: None (occurrence: None)
  Receive Date: 20120821
  Receipt Date: 20120821
  Transmission Date: 20120928
  Serious: Yes (Other)
  Sender: FDA-Public Use
  Company Number: None

PATIENT
  Age: 4 Year
  Sex: Female
  Weight: 16.7831 kg

DRUGS (1)
  1. AMOXICILLIN AND CLAVULANATE POTASSIUM [Suspect]
     Indication: BACTERIAL INFECTION
     Dosage: 1 TSPN TWICE DAILY PO
     Route: 048
     Dates: start: 20120813, end: 20120818

REACTIONS (4)
  - RASH MACULO-PAPULAR [None]
  - PAIN [None]
  - PRURITUS [None]
  - ERYTHEMA [None]
